FAERS Safety Report 24730281 (Version 1)
Quarter: 2024Q4

REPORT INFORMATION
  Report Type: Spontaneous
  Country: US (occurrence: US)
  Receive Date: 20241213
  Receipt Date: 20241213
  Transmission Date: 20250115
  Serious: Yes (Other)
  Sender: SANOFI AVENTIS
  Company Number: US-DialogSolutions-SAAVPROD-PI709381-C1

PATIENT
  Age: 12 Year
  Sex: Female

DRUGS (2)
  1. INSULIN LISPRO [Suspect]
     Active Substance: INSULIN LISPRO
     Indication: Type 1 diabetes mellitus
     Dosage: INJECTION
  2. INSULIN GLARGINE [Suspect]
     Active Substance: INSULIN GLARGINE
     Indication: Type 1 diabetes mellitus
     Dosage: INJECTION

REACTIONS (5)
  - Face oedema [Recovering/Resolving]
  - Periorbital oedema [Recovering/Resolving]
  - Oedema peripheral [Unknown]
  - Abdominal distension [Unknown]
  - Eye swelling [Unknown]
